FAERS Safety Report 9265742 (Version 1)
Quarter: 2013Q2

REPORT INFORMATION
  Report Type: Spontaneous
  Country: US (occurrence: US)
  Receive Date: 20130501
  Receipt Date: 20130501
  Transmission Date: 20140414
  Serious: Yes (Hospitalization, Other)
  Sender: FDA-Public Use
  Company Number: US-US-EMD SERONO, INC.-7207484

PATIENT
  Age: 45 Year
  Sex: Male
  Weight: 100 kg

DRUGS (2)
  1. EGRIFTA [Suspect]
     Indication: LIPODYSTROPHY ACQUIRED
     Route: 058
     Dates: start: 201107, end: 201303
  2. EGRIFTA [Suspect]
     Route: 058
     Dates: start: 20130421

REACTIONS (3)
  - Myocardial infarction [Recovered/Resolved]
  - Pneumonia fungal [Recovering/Resolving]
  - Lipodystrophy acquired [Unknown]
